FAERS Safety Report 24408333 (Version 3)
Quarter: 2025Q3

REPORT INFORMATION
  Report Type: Spontaneous
  Country: JP (occurrence: JP)
  Receive Date: 20241007
  Receipt Date: 20250803
  Transmission Date: 20251021
  Serious: Yes (Other)
  Sender: ALEXION PHARMACEUTICALS
  Company Number: JP-ASTRAZENECA-240104807_013120_P_1

PATIENT
  Age: 80 Year
  Sex: Male

DRUGS (11)
  1. DURVALUMAB [Suspect]
     Active Substance: DURVALUMAB
     Indication: Hepatocellular carcinoma
     Dosage: 1500 MILLIGRAM, Q8W
  2. DURVALUMAB [Suspect]
     Active Substance: DURVALUMAB
  3. DURVALUMAB [Suspect]
     Active Substance: DURVALUMAB
     Dates: start: 20240805, end: 20240805
  4. TREMELIMUMAB [Suspect]
     Active Substance: TREMELIMUMAB
     Indication: Hepatocellular carcinoma
     Dates: start: 20240805, end: 20240805
  5. TREMELIMUMAB [Suspect]
     Active Substance: TREMELIMUMAB
  6. TREMELIMUMAB [Suspect]
     Active Substance: TREMELIMUMAB
  7. FAMOTIDINE [Concomitant]
     Active Substance: FAMOTIDINE
     Route: 065
  8. SENNOSIDES [Concomitant]
     Active Substance: SENNOSIDES
     Route: 065
  9. DAPRODUSTAT [Concomitant]
     Active Substance: DAPRODUSTAT
     Route: 065
  10. ELOBIXIBAT [Concomitant]
     Active Substance: ELOBIXIBAT
     Route: 065
  11. HALCION [Concomitant]
     Active Substance: TRIAZOLAM
     Route: 065

REACTIONS (1)
  - Agranulocytosis [Recovering/Resolving]

NARRATIVE: CASE EVENT DATE: 20240826
